APPROVED DRUG PRODUCT: PROMETHAZINE HYDROCHLORIDE
Active Ingredient: PROMETHAZINE HYDROCHLORIDE
Strength: 50MG/ML
Dosage Form/Route: INJECTABLE;INJECTION
Application: A040593 | Product #002
Applicant: SANDOZ INC
Approved: Nov 8, 2006 | RLD: No | RS: No | Type: DISCN